FAERS Safety Report 22214729 (Version 1)
Quarter: 2023Q2

REPORT INFORMATION
  Report Type: Report from Study
  Country: US (occurrence: US)
  Receive Date: 20230415
  Receipt Date: 20230415
  Transmission Date: 20230722
  Serious: Yes (Other)
  Sender: FDA-Public Use
  Company Number: US-ABBVIE-4727774

PATIENT
  Sex: Female

DRUGS (1)
  1. IMBRUVICA [Suspect]
     Active Substance: IBRUTINIB
     Indication: Chronic lymphocytic leukaemia
     Dosage: STOP DATE-2023
     Route: 048
     Dates: start: 202303

REACTIONS (1)
  - Pericardial effusion [Not Recovered/Not Resolved]
